FAERS Safety Report 7944089-1 (Version None)
Quarter: 2011Q4

REPORT INFORMATION
  Report Type: 
  Country: None (occurrence: None)
  Receive Date: 20111128
  Receipt Date: 20111117
  Transmission Date: 20120403
  Serious: Yes (Other)
  Sender: FDA-Public Use
  Company Number: US-ASTRAZENECA-2010SE42450

PATIENT
  Age: 51 Year
  Sex: Female
  Weight: 68.5 kg

DRUGS (17)
  1. SEROQUEL [Suspect]
     Route: 048
     Dates: start: 20080101
  2. SEROQUEL [Suspect]
     Route: 048
  3. SEROQUEL [Suspect]
     Route: 048
     Dates: start: 20100101
  4. SEROQUEL [Suspect]
     Indication: BIPOLAR DISORDER
     Route: 048
     Dates: start: 20070101
  5. SEROQUEL [Suspect]
     Indication: INSOMNIA
     Route: 048
     Dates: start: 20070101
  6. SEROQUEL [Suspect]
     Route: 048
     Dates: start: 20100101
  7. SEROQUEL [Suspect]
     Indication: SCHIZOAFFECTIVE DISORDER
     Route: 048
     Dates: start: 20070101
  8. SEROQUEL [Suspect]
     Route: 048
     Dates: start: 20080101
  9. SEROQUEL [Suspect]
     Route: 048
  10. SEROQUEL [Suspect]
     Route: 048
     Dates: start: 20100101
  11. SEROQUEL [Suspect]
     Route: 048
     Dates: start: 20080101
  12. SEROQUEL [Suspect]
     Route: 048
  13. VALIUM [Concomitant]
  14. SEROQUEL [Suspect]
     Indication: PANIC ATTACK
     Route: 048
     Dates: start: 20070101
  15. SEROQUEL [Suspect]
     Route: 048
     Dates: start: 20100101
  16. SEROQUEL [Suspect]
     Route: 048
     Dates: start: 20080101
  17. SEROQUEL [Suspect]
     Route: 048

REACTIONS (18)
  - NAUSEA [None]
  - DRUG DOSE OMISSION [None]
  - DEPRESSED MOOD [None]
  - MALAISE [None]
  - DIARRHOEA [None]
  - PANIC DISORDER [None]
  - WITHDRAWAL SYNDROME [None]
  - WEIGHT INCREASED [None]
  - NERVOUSNESS [None]
  - WRONG TECHNIQUE IN DRUG USAGE PROCESS [None]
  - TOOTH INJURY [None]
  - VOMITING [None]
  - MENTAL DISORDER [None]
  - DEPRESSION [None]
  - TREMOR [None]
  - DYSKINESIA [None]
  - COLITIS [None]
  - OFF LABEL USE [None]
